FAERS Safety Report 21483693 (Version 5)
Quarter: 2025Q3

REPORT INFORMATION
  Report Type: Spontaneous
  Country: EU (occurrence: EU)
  Receive Date: 20221020
  Receipt Date: 20250805
  Transmission Date: 20251020
  Serious: Yes (Life-Threatening, Hospitalization, Other)
  Sender: AUROBINDO
  Company Number: EU-ASPEN-GLO2022PT005765

PATIENT
  Age: 28 Year
  Sex: Female

DRUGS (10)
  1. ROPIVACAINE [Suspect]
     Active Substance: ROPIVACAINE
     Indication: Epidural analgesia
     Route: 008
  2. ROPIVACAINE [Suspect]
     Active Substance: ROPIVACAINE
     Indication: Labour pain
  3. ROPIVACAINE [Suspect]
     Active Substance: ROPIVACAINE
     Indication: Analgesic therapy
  4. TRAMADOL [Suspect]
     Active Substance: TRAMADOL
     Indication: Analgesic therapy
     Route: 042
  5. TRAMADOL [Suspect]
     Active Substance: TRAMADOL
     Indication: Labour pain
  6. FENTANYL [Suspect]
     Active Substance: FENTANYL
     Indication: Analgesic therapy
     Route: 008
  7. FENTANYL [Suspect]
     Active Substance: FENTANYL
     Indication: Epidural analgesia
  8. FENTANYL [Suspect]
     Active Substance: FENTANYL
     Indication: Labour pain
  9. SUFENTANIL [Suspect]
     Active Substance: SUFENTANIL
     Indication: Analgesic therapy
     Route: 008
  10. SUFENTANIL [Suspect]
     Active Substance: SUFENTANIL
     Indication: Epidural analgesia

REACTIONS (9)
  - Generalised tonic-clonic seizure [Recovered/Resolved]
  - Respiratory arrest [Recovered/Resolved]
  - Exposure during pregnancy [Unknown]
  - Inadequate analgesia [Unknown]
  - Drug ineffective [Unknown]
  - Caesarean section [Recovered/Resolved]
  - Bradycardia foetal [Recovered/Resolved]
  - Maternal exposure during pregnancy [Recovered/Resolved]
  - Therapeutic product effect incomplete [Unknown]
